FAERS Safety Report 21971166 (Version 1)
Quarter: 2023Q1

REPORT INFORMATION
  Report Type: Spontaneous
  Country: DE (occurrence: DE)
  Receive Date: 20230209
  Receipt Date: 20230209
  Transmission Date: 20230417
  Serious: Yes (Hospitalization, Other)
  Sender: FDA-Public Use
  Company Number: DE-ASTELLAS-2023EU000143

PATIENT
  Sex: Male

DRUGS (19)
  1. VENETOCLAX [Suspect]
     Active Substance: VENETOCLAX
     Indication: Product used for unknown indication
     Dosage: (D1-28)
     Route: 048
     Dates: start: 202209
  2. VENETOCLAX [Suspect]
     Active Substance: VENETOCLAX
     Indication: Product used for unknown indication
     Dosage: (D1-28)
     Route: 048
     Dates: start: 202208
  3. VENETOCLAX [Suspect]
     Active Substance: VENETOCLAX
     Indication: Product used for unknown indication
     Dosage: (D1-28)
     Route: 048
     Dates: start: 20220719
  4. VENETOCLAX [Suspect]
     Active Substance: VENETOCLAX
     Indication: Product used for unknown indication
     Route: 048
     Dates: start: 202008, end: 202009
  5. CYCLOPHOSPHAMIDE [Suspect]
     Active Substance: CYCLOPHOSPHAMIDE
     Indication: Product used for unknown indication
     Dosage: TIME INTERVAL: CYCLICAL: (D1-21)
     Route: 065
     Dates: start: 20220105
  6. BORTEZOMIB [Suspect]
     Active Substance: BORTEZOMIB
     Indication: Product used for unknown indication
     Dosage: TIME INTERVAL: CYCLICAL: (4 CYCLES, D1,4,8,11 Z1-8;)
     Route: 058
     Dates: start: 20210628, end: 202111
  7. POMALIDOMIDE [Suspect]
     Active Substance: POMALIDOMIDE
     Indication: Product used for unknown indication
     Dosage: TIME INTERVAL: CYCLICAL: (D1-21)
     Route: 065
     Dates: start: 20220105
  8. POMALIDOMIDE [Suspect]
     Active Substance: POMALIDOMIDE
     Indication: Product used for unknown indication
     Route: 065
     Dates: start: 202008, end: 202009
  9. BENDAMUSTINE HYDROCHLORIDE [Suspect]
     Active Substance: BENDAMUSTINE HYDROCHLORIDE
     Indication: Product used for unknown indication
     Dosage: TIME INTERVAL: CYCLICAL: 90 MG/KG
     Route: 042
     Dates: start: 20210517
  10. BENDAMUSTINE HYDROCHLORIDE [Suspect]
     Active Substance: BENDAMUSTINE HYDROCHLORIDE
     Indication: Product used for unknown indication
     Dosage: TIME INTERVAL: CYCLICAL: (4 CYCLES, D1+2), FREQUENCY TIME : CYCLICAL
     Route: 042
     Dates: start: 20210621, end: 202111
  11. DEXAMETHASONE [Suspect]
     Active Substance: DEXAMETHASONE
     Indication: Product used for unknown indication
     Dosage: TIME INTERVAL: CYCLICAL: (D1,8,15,22)
     Route: 065
     Dates: start: 20220719
  12. DEXAMETHASONE [Suspect]
     Active Substance: DEXAMETHASONE
     Indication: Product used for unknown indication
     Dosage: TIME INTERVAL: CYCLICAL: (D1,8,15,22)
     Route: 065
     Dates: start: 20220105
  13. DEXAMETHASONE [Suspect]
     Active Substance: DEXAMETHASONE
     Indication: Product used for unknown indication
     Dosage: TIME INTERVAL: CYCLICAL: (D1,8,15,22)
     Route: 065
     Dates: start: 202209
  14. DEXAMETHASONE [Suspect]
     Active Substance: DEXAMETHASONE
     Indication: Product used for unknown indication
     Dosage: TIME INTERVAL: CYCLICAL: (4 CYCLES, D1,2,4,5, 8,9,15,16)
     Route: 065
     Dates: start: 20210628, end: 202111
  15. DEXAMETHASONE [Suspect]
     Active Substance: DEXAMETHASONE
     Indication: Product used for unknown indication
     Dosage: TIME INTERVAL: CYCLICAL: (D1,8,15,22)
     Route: 065
     Dates: start: 202208
  16. DEXAMETHASONE [Suspect]
     Active Substance: DEXAMETHASONE
     Indication: Product used for unknown indication
     Route: 065
     Dates: start: 202008, end: 202009
  17. DARATUMUMAB [Suspect]
     Active Substance: DARATUMUMAB
     Indication: Product used for unknown indication
     Route: 065
     Dates: start: 20210127, end: 202104
  18. ELOTUZUMAB [Suspect]
     Active Substance: ELOTUZUMAB
     Indication: Product used for unknown indication
     Route: 065
     Dates: start: 202010, end: 202101
  19. LENALIDOMIDE [Suspect]
     Active Substance: LENALIDOMIDE

REACTIONS (18)
  - Pneumonia [Unknown]
  - Pyrexia [Unknown]
  - Product use issue [Unknown]
  - Neutropenia [Unknown]
  - Off label use [Unknown]
  - Rhinovirus infection [Unknown]
  - Malignant neoplasm progression [Unknown]
  - Febrile neutropenia [Unknown]
  - Cytopenia [Unknown]
  - Thrombocytopenia [Unknown]
  - Febrile neutropenia [Unknown]
  - Aspiration bone marrow [Unknown]
  - Nonspecific reaction [Unknown]
  - Neutropenic sepsis [Unknown]
  - Aspiration bone marrow [Unknown]
  - Myocardial infarction [Unknown]
  - Cytopenia [Unknown]
  - Plasma cell myeloma [Unknown]

NARRATIVE: CASE EVENT DATE: 20200901
